FAERS Safety Report 11003636 (Version 5)
Quarter: 2015Q3

REPORT INFORMATION
  Report Type: Report from Study
  Country: US (occurrence: US)
  Receive Date: 20150409
  Receipt Date: 20150708
  Transmission Date: 20151125
  Serious: Yes (Hospitalization)
  Sender: FDA-Public Use
  Company Number: US-BIOGENIDEC-2015BI046041

PATIENT
  Age: 59 Year
  Sex: Female

DRUGS (3)
  1. TYSABRI [Suspect]
     Active Substance: NATALIZUMAB
     Indication: MULTIPLE SCLEROSIS
     Route: 042
     Dates: start: 20130327
  2. TYSABRI [Suspect]
     Active Substance: NATALIZUMAB
     Indication: MULTIPLE SCLEROSIS
     Route: 042
  3. TYSABRI [Suspect]
     Active Substance: NATALIZUMAB
     Indication: MULTIPLE SCLEROSIS
     Route: 042
     Dates: start: 20090901, end: 20120220

REACTIONS (16)
  - Dehydration [Recovered/Resolved]
  - Balance disorder [Not Recovered/Not Resolved]
  - Device related infection [Not Recovered/Not Resolved]
  - Hypotension [Recovered/Resolved]
  - Laceration [Recovered/Resolved]
  - Fall [Recovered/Resolved]
  - Vomiting [Unknown]
  - Head injury [Recovered/Resolved]
  - Hypertension [Recovered/Resolved]
  - Gait disturbance [Not Recovered/Not Resolved]
  - Intention tremor [Not Recovered/Not Resolved]
  - Retching [Recovered/Resolved]
  - Uhthoff^s phenomenon [Recovered/Resolved with Sequelae]
  - Diabetes mellitus [Not Recovered/Not Resolved]
  - Upper limb fracture [Recovered/Resolved with Sequelae]
  - Multiple sclerosis relapse [Not Recovered/Not Resolved]

NARRATIVE: CASE EVENT DATE: 201501
